FAERS Safety Report 25137361 (Version 1)
Quarter: 2025Q1

REPORT INFORMATION
  Report Type: Spontaneous
  Country: US (occurrence: US)
  Receive Date: 20250329
  Receipt Date: 20250329
  Transmission Date: 20250409
  Serious: Yes (Hospitalization)
  Sender: CHIESI
  Company Number: US-CHIESI-2025CHF01988

PATIENT
  Sex: Female

DRUGS (3)
  1. BETHKIS [Suspect]
     Active Substance: TOBRAMYCIN
     Indication: Bronchiectasis
     Dosage: 1 DOSAGE FORM, BID
     Dates: start: 202211
  2. BETHKIS [Suspect]
     Active Substance: TOBRAMYCIN
     Indication: Asthma
  3. BETHKIS [Suspect]
     Active Substance: TOBRAMYCIN
     Indication: Off label use

REACTIONS (2)
  - Back disorder [Unknown]
  - Off label use [Not Recovered/Not Resolved]
